FAERS Safety Report 6662028-0 (Version None)
Quarter: 2010Q1

REPORT INFORMATION
  Report Type: 
  Country: None (occurrence: None)
  Receive Date: 20100331
  Receipt Date: 20100106
  Transmission Date: 20100710
  Serious: No
  Sender: FDA-Public Use
  Company Number: US-BRISTOL-MYERS SQUIBB COMPANY-14923262

PATIENT
  Age: 54 Year
  Sex: Male

DRUGS (4)
  1. ERBITUX [Suspect]
     Indication: HEAD AND NECK CANCER
  2. OXYCODONE [Concomitant]
  3. IBUPROFEN [Concomitant]
  4. MORPHINE [Concomitant]

REACTIONS (1)
  - NAIL DISORDER [None]
